FAERS Safety Report 14643403 (Version 1)
Quarter: 2018Q1

REPORT INFORMATION
  Report Type: Spontaneous
  Country: US (occurrence: US)
  Receive Date: 20180315
  Receipt Date: 20180315
  Transmission Date: 20180509
  Serious: No
  Sender: FDA-Public Use
  Company Number: US-GE HEALTHCARE LIFE SCIENCES-2018CSU001036

PATIENT

DRUGS (1)
  1. OPTISON [Suspect]
     Active Substance: ALBUMIN HUMAN
     Indication: PRODUCT USED FOR UNKNOWN INDICATION
     Dosage: 3 ML, SINGLE
     Route: 065

REACTIONS (2)
  - No adverse event [Unknown]
  - Product quality issue [Unknown]
